FAERS Safety Report 23581068 (Version 1)
Quarter: 2024Q1

REPORT INFORMATION
  Report Type: Spontaneous
  Country: US (occurrence: US)
  Receive Date: 20240229
  Receipt Date: 20240229
  Transmission Date: 20240410
  Serious: No
  Sender: FDA-Public Use
  Company Number: US-BAUSCH-BL-2024-003209

PATIENT
  Sex: Female

DRUGS (1)
  1. RELISTOR [Suspect]
     Active Substance: METHYLNALTREXONE BROMIDE
     Indication: Product used for unknown indication
     Dosage: MORNING IN EMPTY STOMACH
     Route: 065
     Dates: start: 20240224

REACTIONS (2)
  - Palpitations [Recovering/Resolving]
  - Drug hypersensitivity [Unknown]
